FAERS Safety Report 8233905-4 (Version None)
Quarter: 2012Q1

REPORT INFORMATION
  Report Type: 
  Country: None (occurrence: None)
  Receive Date: 20120321
  Receipt Date: 20080905
  Transmission Date: 20120608
  Serious: Yes (Death, Hospitalization)
  Sender: FDA-Public Use
  Company Number: DE-007785

PATIENT
  Sex: Male
  Weight: 77 kg

DRUGS (5)
  1. LEUPROLIDE ACETATE [Concomitant]
  2. (OTHERS) [Suspect]
     Indication: ASTHMA
     Dosage: INHALATION POWDER, RESPIRATORY (INHALATION)
     Route: 055
  3. SIMVASTATIN [Concomitant]
  4. (CHLORAMBUCIL) [Suspect]
     Indication: CHRONIC LYMPHOCYTIC LEUKAEMIA STAGE 2
     Dosage: TABLET 8MG DER DAY, ORAL
     Route: 048
     Dates: start: 20080123, end: 20080418
  5. CAMOMILE [Concomitant]

REACTIONS (1)
  - COOMBS POSITIVE HAEMOLYTIC ANAEMIA [None]
